FAERS Safety Report 8939314 (Version 1)
Quarter: 2012Q4

REPORT INFORMATION
  Report Type: 
  Country: CH (occurrence: CH)
  Receive Date: 20121203
  Receipt Date: 20121203
  Transmission Date: 20130627
  Serious: Yes (Hospitalization, Other)
  Sender: FDA-Public Use
  Company Number: CH-JNJFOC-20121111133

PATIENT
  Age: 38 Year
  Sex: Female

DRUGS (7)
  1. HALDOL [Suspect]
     Indication: BIPOLAR DISORDER
     Route: 065
     Dates: start: 20111228
  2. HALDOL [Suspect]
     Indication: BIPOLAR DISORDER
     Route: 065
     Dates: start: 20120103
  3. OLANZAPINE [Suspect]
     Indication: BIPOLAR DISORDER
     Route: 065
     Dates: start: 20111223, end: 20111228
  4. ABILIFY [Suspect]
     Indication: PRODUCT USED FOR UNKNOWN INDICATION
     Route: 065
  5. ENTUMIN [Suspect]
     Indication: PRODUCT USED FOR UNKNOWN INDICATION
     Route: 065
  6. LORAZEPAM [Suspect]
     Indication: BIPOLAR DISORDER
     Route: 065
  7. NICOTINELL [Suspect]
     Indication: PRODUCT USED FOR UNKNOWN INDICATION
     Route: 065

REACTIONS (2)
  - Exposure during pregnancy [Recovered/Resolved]
  - Self injurious behaviour [Unknown]
